FAERS Safety Report 5825834-8 (Version None)
Quarter: 2008Q3

REPORT INFORMATION
  Report Type: 
  Country: None (occurrence: None)
  Receive Date: 20080729
  Receipt Date: 20080723
  Transmission Date: 20090109
  Serious: Yes (Death, Hospitalization)
  Sender: FDA-Public Use
  Company Number: TW-AVENTIS-200813915GDDC

PATIENT
  Sex: Female

DRUGS (3)
  1. TAXOTERE [Suspect]
     Indication: BREAST CANCER
     Dosage: DOSE: UNK
     Route: 042
  2. EPIRUBICIN [Concomitant]
     Indication: BREAST CANCER
     Dosage: DOSE: UNK
  3. CYCLOPHOSPHAMIDE [Concomitant]
     Indication: BREAST CANCER
     Dosage: DOSE: UNK

REACTIONS (1)
  - INTERSTITIAL LUNG DISEASE [None]
